FAERS Safety Report 17197548 (Version 1)
Quarter: 2019Q4

REPORT INFORMATION
  Report Type: Spontaneous
  Country: BR (occurrence: BR)
  Receive Date: 20191224
  Receipt Date: 20191224
  Transmission Date: 20200122
  Serious: Yes (Other)
  Sender: FDA-Public Use
  Company Number: BR-009507513-1912BRA010284

PATIENT
  Sex: Female
  Weight: 94 kg

DRUGS (2)
  1. LOSARTAN POTASSIUM. [Suspect]
     Active Substance: LOSARTAN POTASSIUM
     Dosage: UNK
  2. CENTRUM (MINERALS (UNSPECIFIED) (+) VITAMINS (UNSPECIFIED)) [Concomitant]
     Active Substance: MINERALS\VITAMINS
     Indication: ROUTINE HEALTH MAINTENANCE
     Dosage: TABLET EVERY OTHER DAY

REACTIONS (27)
  - Haematochezia [Recovered/Resolved]
  - Dysstasia [Unknown]
  - Blood pressure increased [Recovered/Resolved]
  - Erythema [Unknown]
  - Localised infection [Unknown]
  - Muscle spasms [Recovered/Resolved]
  - Nervousness [Recovered/Resolved]
  - Weight increased [Unknown]
  - Arthropod bite [Unknown]
  - Skin discolouration [Unknown]
  - Peripheral swelling [Not Recovered/Not Resolved]
  - Feeling hot [Unknown]
  - Insomnia [Unknown]
  - Pain [Not Recovered/Not Resolved]
  - Dyspnoea [Recovered/Resolved]
  - Throat tightness [Recovered/Resolved]
  - Blood urine [Recovered/Resolved]
  - Blood oestrogen decreased [Not Recovered/Not Resolved]
  - Crying [Recovered/Resolved]
  - Cystitis [Recovered/Resolved]
  - Influenza [Unknown]
  - Pharyngeal oedema [Recovered/Resolved]
  - Blood pressure decreased [Unknown]
  - Pharyngeal haemorrhage [Recovered/Resolved with Sequelae]
  - Throat irritation [Unknown]
  - Cough [Not Recovered/Not Resolved]
  - Abdominal pain [Recovered/Resolved]

NARRATIVE: CASE EVENT DATE: 2013
